FAERS Safety Report 9518288 (Version 1)
Quarter: 2013Q3

REPORT INFORMATION
  Report Type: Spontaneous
  Country: DE (occurrence: None)
  Receive Date: 20130910
  Receipt Date: 20130910
  Transmission Date: 20140515
  Serious: Yes (Hospitalization, Other)
  Sender: FDA-Public Use
  Company Number: GER/GER/13/0034460

PATIENT
  Age: 1 Day
  Sex: Female
  Weight: 2.39 kg

DRUGS (3)
  1. SERTRALINE (SERTRALINE) [Suspect]
     Indication: PRODUCT USED FOR UNKNOWN INDICATION
     Route: 064
  2. BETAMETHASONE (BETAMETHASONE) [Concomitant]
  3. PAROXAT (PAROXETINE HYDROCHLORIDE) [Concomitant]

REACTIONS (5)
  - Bradycardia neonatal [None]
  - Neonatal respiratory distress syndrome [None]
  - Foetal exposure during pregnancy [None]
  - Caesarean section [None]
  - Premature baby [None]
